FAERS Safety Report 10161418 (Version 1)
Quarter: 2014Q2

REPORT INFORMATION
  Report Type: Spontaneous
  Country: US (occurrence: US)
  Receive Date: 20140509
  Receipt Date: 20140509
  Transmission Date: 20141212
  Serious: Yes (Other)
  Sender: FDA-Public Use
  Company Number: 2014SP002514

PATIENT
  Sex: 0

DRUGS (2)
  1. METHOTREXATE [Suspect]
     Indication: RHEUMATOID ARTHRITIS
  2. PREDNISOLONE [Suspect]
     Indication: PRODUCT USED FOR UNKNOWN INDICATION

REACTIONS (6)
  - Cellulitis [Unknown]
  - Limb discomfort [Unknown]
  - Rheumatoid arthritis [Unknown]
  - Alopecia [Unknown]
  - Fatigue [Unknown]
  - Weight increased [Unknown]
